FAERS Safety Report 8974431 (Version 3)
Quarter: 2013Q2

REPORT INFORMATION
  Report Type: Spontaneous
  Country: US (occurrence: None)
  Receive Date: 20120508
  Receipt Date: 20121107
  Transmission Date: 20140414
  Serious: Yes (Other)
  Sender: FDA-Public Use
  Company Number: 2012HGS-003255

PATIENT
  Age: 44 Year
  Sex: Female
  Weight: 107.96 kg

DRUGS (15)
  1. BENLYSTA [Suspect]
     Indication: SYSTEMIC LUPUS ERYTHEMATOSUS
     Route: 041
     Dates: start: 20121101
  2. ADDERAL (OBETROL /01343401/) (DEXAMFETAMINE SULFATE, AMFETAMINE SULFATE AMFETAMINE ASPARTATE, DEXAMFETAMINE SACCHARATE) [Concomitant]
  3. PLAQUENIL (HYDROXYCHLOROQUINE SULFATE) (HYDROXYCHLOROQUINE SULFATE) [Concomitant]
  4. ASPIRIN (ACETYLSALICYLIC ACID) (ACETYLSALICYLIC ACID) [Concomitant]
  5. FOLIC ACID (FOLIC ACID) (FOLIC ACID) [Concomitant]
  6. VITAMIN D (ERGOCALCIFEROL) (ERGOCALCIFEROL) [Concomitant]
  7. FISH OIL (FISH OIL) (FISH OIL) [Concomitant]
  8. NIACIN (NICOTINIC ACID) [Concomitant]
  9. CITALOPRAM (CITALOPRAM) (CITALOPRAM) [Concomitant]
  10. AMLODIPINE BESYLATE (AMLODIPINE BESILATE) (AMLODIPINE BESILATE) [Concomitant]
  11. MILK THISTLE (SILYBUM MARIANUM) (SILYBUM MARIANUM) [Concomitant]
  12. HYDROCHLOROTHIAZIDE (HYDROCHLOROTHIAZIDE) (HYDROCHLOROTHIAZIDE) [Concomitant]
  13. CLINDAMYCIN (CLINDAMYCIN) (CLINDAMYCIN) [Concomitant]
  14. VITAMIN C (ASCORBIC ACID) (ASCORBIC ACID) [Concomitant]
  15. PREDNISONE (PREDNISONE) (PREDNISONE) [Concomitant]

REACTIONS (1)
  - Pharyngitis streptococcal [None]
